FAERS Safety Report 9478552 (Version 2)
Quarter: 2013Q3

REPORT INFORMATION
  Report Type: Spontaneous
  Country: US (occurrence: US)
  Receive Date: 20130827
  Receipt Date: 20130905
  Transmission Date: 20140515
  Serious: No
  Sender: FDA-Public Use
  Company Number: US-009507513-1308USA011928

PATIENT
  Sex: 0

DRUGS (1)
  1. NEXPLANON [Suspect]
     Dosage: UNKNOWN
     Route: 059
     Dates: end: 20130825

REACTIONS (3)
  - Staphylococcal infection [Unknown]
  - Implant site infection [Unknown]
  - Implant site erythema [Unknown]
